FAERS Safety Report 8980885 (Version 5)
Quarter: 2013Q2

REPORT INFORMATION
  Report Type: Spontaneous
  Country: US (occurrence: US)
  Receive Date: 20121221
  Receipt Date: 20130408
  Transmission Date: 20140414
  Serious: Yes (Hospitalization, Disabling, Other)
  Sender: FDA-Public Use
  Company Number: US-009507513-1212USA007601

PATIENT
  Sex: Female
  Weight: 90.25 kg

DRUGS (2)
  1. FOSAMAX [Suspect]
     Indication: OSTEOPENIA
     Dosage: 70 MG, QW
     Route: 048
     Dates: start: 2001, end: 20091030
  2. CELEBREX [Concomitant]
     Indication: ARTHRITIS
     Dosage: UNK
     Dates: start: 1995

REACTIONS (56)
  - Meningitis bacterial [Unknown]
  - Mastoiditis [Unknown]
  - Supraventricular tachycardia [Unknown]
  - Deafness neurosensory [Not Recovered/Not Resolved]
  - Bone trimming [Unknown]
  - Surgery [Unknown]
  - Spinal laminectomy [Unknown]
  - Osteonecrosis [Unknown]
  - Osteonecrosis of jaw [Unknown]
  - Jaw operation [Unknown]
  - Tooth extraction [Unknown]
  - Tooth extraction [Unknown]
  - Device failure [Not Recovered/Not Resolved]
  - Hypertension [Unknown]
  - Hyperlipidaemia [Unknown]
  - Ear tube insertion [Recovered/Resolved]
  - Herpes zoster [Unknown]
  - Cerebrospinal fluid leakage [Recovered/Resolved]
  - Mastoidectomy [Recovered/Resolved]
  - Ear tube removal [Recovered/Resolved]
  - Tympanoplasty [Recovered/Resolved]
  - Osteoporosis [Unknown]
  - Acute tonsillitis [Unknown]
  - Fall [Unknown]
  - Sacroiliitis [Unknown]
  - Bursitis [Unknown]
  - Costochondritis [Unknown]
  - Spinal osteoarthritis [Unknown]
  - Weight increased [Unknown]
  - Hiatus hernia [Unknown]
  - Dyspnoea exertional [Unknown]
  - Cardiac disorder [Unknown]
  - Visual impairment [Unknown]
  - Sinusitis [Unknown]
  - Oral infection [Recovering/Resolving]
  - Bone loss [Unknown]
  - Tooth disorder [Unknown]
  - Dental caries [Unknown]
  - Oral infection [Not Recovered/Not Resolved]
  - Apicectomy [Recovering/Resolving]
  - Wisdom teeth removal [Unknown]
  - Tooth extraction [Unknown]
  - Dental caries [Unknown]
  - Toothache [Unknown]
  - Endodontic procedure [Unknown]
  - Dental fistula [Unknown]
  - Stomatitis [Unknown]
  - Tooth extraction [Unknown]
  - Tooth disorder [Recovering/Resolving]
  - Temporomandibular joint syndrome [Unknown]
  - Bone lesion [Unknown]
  - Exostosis [Unknown]
  - Alveoloplasty [Unknown]
  - Back pain [Not Recovered/Not Resolved]
  - Headache [Unknown]
  - Gastrooesophageal reflux disease [Unknown]
